FAERS Safety Report 8728715 (Version 2)
Quarter: 2013Q1

REPORT INFORMATION
  Report Type: Spontaneous
  Country: BR (occurrence: BR)
  Receive Date: 20120817
  Receipt Date: 20130326
  Transmission Date: 20140127
  Serious: No
  Sender: FDA-Public Use
  Company Number: PHHY2012BR070809

PATIENT
  Age: 78 Year
  Sex: Female
  Weight: 50 kg

DRUGS (5)
  1. EXELON [Suspect]
     Indication: DEMENTIA ALZHEIMER^S TYPE
     Dosage: ONE TABLET DAILY (1.5MG)
     Route: 048
  2. EXELON [Suspect]
     Dosage: ONE TABLET DAILY (3MG)
     Route: 048
  3. EXELON PATCH [Suspect]
     Indication: DEMENTIA ALZHEIMER^S TYPE
     Dosage: ONE PATCH 5 (4.6MG) DAILY1 DF, QD
     Route: 062
  4. MEMANTINE [Suspect]
     Indication: DEMENTIA ALZHEIMER^S TYPE
     Dosage: ONE TABLET DAILY (10MG)
     Route: 048
  5. PAROXETINE [Concomitant]
     Indication: DEPRESSION
     Dosage: ONE TABLET (UNSURE IF 20MG OR 40MG) DAILY
     Route: 048

REACTIONS (8)
  - Loss of consciousness [Recovering/Resolving]
  - Incoherent [Recovering/Resolving]
  - Mood swings [Recovering/Resolving]
  - Aggression [Recovering/Resolving]
  - Agitation [Recovered/Resolved]
  - Insomnia [Recovered/Resolved]
  - Depression [Recovering/Resolving]
  - Asthenia [Recovering/Resolving]
